FAERS Safety Report 8419897-3 (Version None)
Quarter: 2012Q2

REPORT INFORMATION
  Report Type: 
  Country: None (occurrence: None)
  Receive Date: 20120607
  Receipt Date: 20120525
  Transmission Date: 20120825
  Serious: No
  Sender: FDA-Public Use
  Company Number: US-B.I. PHARMACEUTICALS,INC./RIDGEFIELD-2012-BP-12371BP

PATIENT
  Age: 65 Year
  Sex: Female

DRUGS (3)
  1. GLYBURIDE [Suspect]
  2. MELOXICAM [Suspect]
     Indication: ARTHRITIS
     Route: 065
  3. GLARGINE [Suspect]
     Indication: TYPE 2 DIABETES MELLITUS
     Route: 058
     Dates: end: 20060101

REACTIONS (3)
  - ROAD TRAFFIC ACCIDENT [None]
  - MEMORY IMPAIRMENT [None]
  - BLOOD GLUCOSE INCREASED [None]
